FAERS Safety Report 16265946 (Version 2)
Quarter: 2019Q4

REPORT INFORMATION
  Report Type: Spontaneous
  Country: US (occurrence: US)
  Receive Date: 20190502
  Receipt Date: 20191029
  Transmission Date: 20200122
  Serious: Yes (Other)
  Sender: FDA-Public Use
  Company Number: US-ASTRAZENECA-2019SE09586

PATIENT
  Age: 25021 Day
  Sex: Male
  Weight: 77.6 kg

DRUGS (24)
  1. LYRICA [Concomitant]
     Active Substance: PREGABALIN
  2. FERROUS SULFATE. [Concomitant]
     Active Substance: FERROUS SULFATE
  3. ONDANSETRON [Concomitant]
     Active Substance: ONDANSETRON
  4. PREVACID [Suspect]
     Active Substance: LANSOPRAZOLE
     Indication: GASTROOESOPHAGEAL REFLUX DISEASE
     Dosage: FOR VARIOUS DATES AND YEARS PRIOR TO AND/OR INCLUDING THE DATES OF PLAINTIFF^S INJURY OR INJURIES
     Route: 065
  5. METHOCARBAMOL. [Concomitant]
     Active Substance: METHOCARBAMOL
  6. LIPITOR [Concomitant]
     Active Substance: ATORVASTATIN CALCIUM
  7. OXYCODONE [Concomitant]
     Active Substance: OXYCODONE
  8. LASIX [Concomitant]
     Active Substance: FUROSEMIDE
  9. ALLOPURINOL. [Concomitant]
     Active Substance: ALLOPURINOL
  10. ROBAXIN [Concomitant]
     Active Substance: METHOCARBAMOL
  11. METOPROLOL TARTRATE. [Concomitant]
     Active Substance: METOPROLOL TARTRATE
  12. PERCOCET [Concomitant]
     Active Substance: ACETAMINOPHEN\OXYCODONE HYDROCHLORIDE
  13. TOLTERODINE TARTRATE. [Concomitant]
     Active Substance: TOLTERODINE TARTRATE
  14. SINGULAIR [Concomitant]
     Active Substance: MONTELUKAST SODIUM
  15. DOXAZOSIN [Concomitant]
     Active Substance: DOXAZOSIN MESYLATE
  16. FERROUS SULFATE. [Concomitant]
     Active Substance: FERROUS SULFATE
  17. CARDURA [Concomitant]
     Active Substance: DOXAZOSIN MESYLATE
  18. NEXIUM [Suspect]
     Active Substance: ESOMEPRAZOLE MAGNESIUM
     Dosage: FOR VARIOUS DATES AND YEARS PRIOR TO AND/OR INCLUDING THE DATES OF PLAINTIFF^S INJURY OR INJURIES
     Route: 048
  19. LOSARTAN POTASSIUM. [Concomitant]
     Active Substance: LOSARTAN POTASSIUM
  20. ALLOPURINOL. [Concomitant]
     Active Substance: ALLOPURINOL
  21. CALCITROL [Concomitant]
  22. HYDROCODONE/ACETAMINOPHEN [Concomitant]
     Active Substance: ACETAMINOPHEN\HYDROCODONE
  23. VALSARTAN. [Concomitant]
     Active Substance: VALSARTAN
  24. PREDNISONE. [Concomitant]
     Active Substance: PREDNISONE

REACTIONS (8)
  - Renal impairment [Unknown]
  - Nephrogenic anaemia [Unknown]
  - Renal injury [Unknown]
  - Gout [Unknown]
  - Rebound acid hypersecretion [Unknown]
  - Renal failure [Unknown]
  - Acute kidney injury [Unknown]
  - Chronic kidney disease [Unknown]

NARRATIVE: CASE EVENT DATE: 20140902
